FAERS Safety Report 13239823 (Version 1)
Quarter: 2017Q1

REPORT INFORMATION
  Report Type: Spontaneous
  Country: US (occurrence: US)
  Receive Date: 20170216
  Receipt Date: 20170216
  Transmission Date: 20170428
  Serious: No
  Sender: FDA-Public Use
  Company Number: US-RELYPSA-RLY2016003613

PATIENT
  Sex: Male

DRUGS (8)
  1. FUROSEMIDE. [Concomitant]
     Active Substance: FUROSEMIDE
  2. NAMENDA [Concomitant]
     Active Substance: MEMANTINE HYDROCHLORIDE
  3. VELTASSA [Suspect]
     Active Substance: PATIROMER
     Indication: CONSTIPATION
  4. CO Q 10                            /00517201/ [Concomitant]
  5. VELTASSA [Suspect]
     Active Substance: PATIROMER
     Indication: BLOOD POTASSIUM ABNORMAL
     Dosage: 8.4 G, QD
     Route: 048
     Dates: start: 201610
  6. CLOPIDOGREL [Concomitant]
     Active Substance: CLOPIDOGREL BISULFATE
  7. EXELON [Concomitant]
     Active Substance: RIVASTIGMINE TARTRATE
  8. ASPIRIN                            /00002701/ [Concomitant]
     Active Substance: ASPIRIN

REACTIONS (2)
  - Constipation [Not Recovered/Not Resolved]
  - Diarrhoea [Unknown]

NARRATIVE: CASE EVENT DATE: 2016
